FAERS Safety Report 19942520 (Version 1)
Quarter: 2021Q4

REPORT INFORMATION
  Report Type: Spontaneous
  Country: US (occurrence: US)
  Receive Date: 20211012
  Receipt Date: 20211012
  Transmission Date: 20220303
  Serious: No
  Sender: FDA-Public Use
  Company Number: US-GW PHARMA-202110USGW04854

PATIENT

DRUGS (1)
  1. EPIDIOLEX [Suspect]
     Active Substance: CANNABIDIOL
     Indication: Idiopathic generalised epilepsy
     Dosage: 600 MILLIGRAM, BID
     Route: 048
     Dates: start: 201905

REACTIONS (3)
  - Seizure [Unknown]
  - Product use in unapproved indication [Unknown]
  - Product prescribing issue [Unknown]
